FAERS Safety Report 6057939-3 (Version None)
Quarter: 2009Q1

REPORT INFORMATION
  Report Type: 
  Country: None (occurrence: None)
  Receive Date: 20090127
  Receipt Date: 20090120
  Transmission Date: 20090719
  Serious: Yes (Death)
  Sender: FDA-Public Use
  Company Number: MEDI-007792

PATIENT
  Age: 4 Month
  Sex: Male

DRUGS (1)
  1. SYNAGIS [Suspect]
     Indication: PREMATURE BABY
     Dosage: 15 MG/KG, 1 IN 1 M, INTRAMUSCULAR
     Route: 030
     Dates: start: 20081202, end: 20090109

REACTIONS (1)
  - DEATH [None]
